FAERS Safety Report 7945199-5 (Version None)
Quarter: 2011Q4

REPORT INFORMATION
  Report Type: 
  Country: None (occurrence: None)
  Receive Date: 20111129
  Receipt Date: 20101130
  Transmission Date: 20120403
  Serious: No
  Sender: FDA-Public Use
  Company Number: US-GLAXOSMITHKLINE-A0896959A

PATIENT
  Age: 63 Year
  Sex: Female

DRUGS (2)
  1. FLOVENT [Suspect]
     Indication: COUGH
     Dosage: 1PUFF TWICE PER DAY
     Route: 055
     Dates: start: 20101129
  2. CONCURRENT MEDICATIONS [Concomitant]

REACTIONS (1)
  - THROAT IRRITATION [None]
